FAERS Safety Report 5428277-4 (Version None)
Quarter: 2007Q3

REPORT INFORMATION
  Report Type: 
  Country: None (occurrence: None)
  Receive Date: 20070828
  Receipt Date: 20070816
  Transmission Date: 20080115
  Serious: Yes (Death, Other)
  Sender: FDA-Public Use
  Company Number: FR-PFIZER INC-2004204105FR

PATIENT
  Sex: Female
  Weight: 55 kg

DRUGS (13)
  1. AROMASIN [Suspect]
     Indication: BREAST CANCER
     Route: 048
     Dates: start: 20030810, end: 20040206
  2. DIGOXIN [Concomitant]
     Indication: ATRIAL FIBRILLATION
     Route: 048
     Dates: start: 19970101, end: 20040302
  3. FLUINDIONE [Concomitant]
     Indication: ATRIAL FIBRILLATION
     Route: 048
     Dates: start: 19970101, end: 20040302
  4. FLUINDIONE [Concomitant]
     Indication: PULMONARY EMBOLISM
  5. CARBIMAZOLE [Concomitant]
     Indication: HYPERTHYROIDISM
     Route: 048
     Dates: start: 19770101, end: 20040302
  6. TRINITRINE [Concomitant]
     Indication: ANXIETY
     Route: 048
     Dates: start: 19970101, end: 20040302
  7. VALPROMIDE [Concomitant]
     Indication: DEPRESSION
     Route: 048
     Dates: start: 19720101, end: 20040302
  8. URBANYL [Concomitant]
     Indication: DEPRESSION
     Route: 048
     Dates: start: 19720101, end: 20040302
  9. DAFALGAN [Concomitant]
     Indication: BONE PAIN
     Route: 048
     Dates: start: 20031201, end: 20040302
  10. OMEPRAZOLE [Concomitant]
     Indication: ABDOMINAL PAIN UPPER
     Route: 048
     Dates: start: 20031101, end: 20040302
  11. LASIX [Concomitant]
     Indication: OEDEMA PERIPHERAL
     Route: 048
     Dates: start: 20031101, end: 20040302
  12. ZOPICLONE [Concomitant]
     Indication: INSOMNIA
     Route: 048
     Dates: start: 19970101, end: 20040302
  13. EFFEXOR [Concomitant]
     Indication: DEPRESSION
     Route: 048
     Dates: start: 20031201, end: 20040302

REACTIONS (2)
  - ACUTE RESPIRATORY FAILURE [None]
  - METASTASES TO BONE [None]
